FAERS Safety Report 15635692 (Version 1)
Quarter: 2018Q4

REPORT INFORMATION
  Report Type: Spontaneous
  Country: BR (occurrence: BR)
  Receive Date: 20181120
  Receipt Date: 20181120
  Transmission Date: 20190205
  Serious: Yes (Other)
  Sender: FDA-Public Use
  Company Number: BR-SUN PHARMACEUTICAL INDUSTRIES LTD-2018RR-191527

PATIENT
  Age: 32 Year
  Sex: Female

DRUGS (2)
  1. CARBOPLATIN. [Suspect]
     Active Substance: CARBOPLATIN
     Indication: ADENOCARCINOMA OF THE CERVIX
     Dosage: AUC5, THE 26TH AND 30TH WEEKS OF PREGNANCY, AS NEOADJUVANT CHEMOTHERAPY
     Route: 065
  2. PACLITAXEL. [Suspect]
     Active Substance: PACLITAXEL
     Indication: ADENOCARCINOMA OF THE CERVIX
     Dosage: 175 /M2, THE 26TH AND 30TH WEEKS OF PREGNANCY, AS NEOADJUVANT CHEMOTHERAPY
     Route: 065

REACTIONS (2)
  - Exposure during pregnancy [Unknown]
  - Deafness [Unknown]
